FAERS Safety Report 10174772 (Version 1)
Quarter: 2014Q2

REPORT INFORMATION
  Report Type: Spontaneous
  Country: CN (occurrence: CN)
  Receive Date: 20140515
  Receipt Date: 20140515
  Transmission Date: 20141212
  Serious: Yes (Hospitalization)
  Sender: FDA-Public Use
  Company Number: CN-PFIZER INC-2014132590

PATIENT
  Age: 69 Year
  Sex: Male
  Weight: 78 kg

DRUGS (4)
  1. NORVASC [Suspect]
     Indication: HYPERTENSION
     Dosage: 10 MG, 1X/DAY
     Route: 048
     Dates: start: 20130103, end: 20130523
  2. TORASEMIDE [Suspect]
     Indication: HYPERTENSION
     Dosage: 5 MG, 1X/DAY
     Route: 048
     Dates: start: 20130103, end: 20130106
  3. ASPIRIN ENTERIC COATED K.P. [Suspect]
     Indication: HYPERTENSION
     Dosage: 100 MG, 1X/DAY
     Route: 048
     Dates: start: 20130103, end: 20130523
  4. BETALOC [Suspect]
     Indication: HYPERTENSION
     Dosage: 23.75 MG, 1X/DAY
     Route: 048
     Dates: start: 20130103, end: 20130523

REACTIONS (4)
  - Primary hyperaldosteronism [Recovering/Resolving]
  - Asthenia [Recovering/Resolving]
  - Gait disturbance [Recovering/Resolving]
  - Hypokalaemia [Recovering/Resolving]
